FAERS Safety Report 8083826-5 (Version None)
Quarter: 2012Q1

REPORT INFORMATION
  Report Type: 
  Country: None (occurrence: None)
  Receive Date: 20120128
  Receipt Date: 20110204
  Transmission Date: 20120608
  Serious: No
  Sender: FDA-Public Use
  Company Number: US-ABBOTT-11P-163-0703049-00

PATIENT
  Age: 34 Year
  Sex: Male

DRUGS (6)
  1. NASONEX [Concomitant]
     Dosage: 1 SPRAY PER NOSTRIL DAILY
     Route: 045
  2. ASPIRIN [Concomitant]
     Indication: PRODUCT USED FOR UNKNOWN INDICATION
  3. MULTI-VITAMIN [Concomitant]
     Indication: PRODUCT USED FOR UNKNOWN INDICATION
  4. NASONEX [Suspect]
     Indication: PRODUCT USED FOR UNKNOWN INDICATION
  5. TOPROL-XL [Concomitant]
     Indication: HYPERTENSION
  6. HUMIRA [Suspect]
     Indication: PSORIASIS
     Dates: start: 20110127

REACTIONS (1)
  - EPISTAXIS [None]
